FAERS Safety Report 9912384 (Version 6)
Quarter: 2014Q2

REPORT INFORMATION
  Report Type: Report from Study
  Country: CA (occurrence: CA)
  Receive Date: 20140220
  Receipt Date: 20140529
  Transmission Date: 20141212
  Serious: Yes (Other)
  Sender: FDA-Public Use
  Company Number: CA-ROCHE-1325320

PATIENT
  Age: 43 Year
  Sex: Female
  Weight: 100 kg

DRUGS (2)
  1. ACTEMRA [Suspect]
     Indication: RHEUMATOID ARTHRITIS
     Route: 042
     Dates: start: 20130605
  2. CELEBREX [Concomitant]

REACTIONS (9)
  - Chondropathy [Unknown]
  - Asthma [Unknown]
  - Weight decreased [Unknown]
  - Influenza like illness [Recovering/Resolving]
  - Hypotension [Unknown]
  - Ear pain [Not Recovered/Not Resolved]
  - Hypersensitivity [Not Recovered/Not Resolved]
  - Nasopharyngitis [Not Recovered/Not Resolved]
  - Cystitis [Not Recovered/Not Resolved]
